FAERS Safety Report 9586938 (Version 1)
Quarter: 2013Q4

REPORT INFORMATION
  Report Type: Report from Study
  Country: US (occurrence: US)
  Receive Date: 20131003
  Receipt Date: 20131003
  Transmission Date: 20140711
  Serious: Yes (Other)
  Sender: FDA-Public Use
  Company Number: US-ROCHE-1284337

PATIENT
  Sex: Male

DRUGS (6)
  1. AVASTIN [Suspect]
     Indication: PRODUCT USED FOR UNKNOWN INDICATION
     Route: 065
  2. LUCENTIS [Suspect]
     Indication: RETINAL VEIN OCCLUSION
     Dosage: OU
     Route: 065
  3. LUCENTIS [Suspect]
     Indication: MACULAR OEDEMA
  4. LUCENTIS [Suspect]
     Indication: CATARACT NUCLEAR
  5. FISH OIL [Concomitant]
  6. GLUCOSAMINE SULFATE [Concomitant]

REACTIONS (1)
  - Macular oedema [Unknown]
